FAERS Safety Report 8896214 (Version 1)
Quarter: 2012Q4

REPORT INFORMATION
  Report Type: 
  Country: AU (occurrence: AU)
  Receive Date: 20121108
  Receipt Date: 20121108
  Transmission Date: 20130627
  Serious: Yes (Other)
  Sender: FDA-Public Use
  Company Number: AU-ABBOTT-12P-008-1003821-00

PATIENT
  Age: 37 Year
  Sex: Female

DRUGS (5)
  1. EPILIM [Suspect]
     Indication: CONVULSION
     Dosage: 1000 mg daily
     Route: 065
     Dates: end: 2012
  2. TEMAZEPAM [Concomitant]
     Indication: PRODUCT USED FOR UNKNOWN INDICATION
  3. VOLTAREN [Concomitant]
     Indication: PRODUCT USED FOR UNKNOWN INDICATION
  4. TRAMADOL HYDROCHLORIDE [Concomitant]
     Indication: PRODUCT USED FOR UNKNOWN INDICATION
  5. PROTHIADEN [Concomitant]
     Indication: PRODUCT USED FOR UNKNOWN INDICATION

REACTIONS (6)
  - Fall [Unknown]
  - Cerebrovascular accident [Unknown]
  - Aphasia [Unknown]
  - Unevaluable event [Unknown]
  - Convulsion [Unknown]
  - Amnesia [Unknown]
